FAERS Safety Report 17212969 (Version 1)
Quarter: 2019Q4

REPORT INFORMATION
  Report Type: Spontaneous
  Country: SE (occurrence: SE)
  Receive Date: 20191230
  Receipt Date: 20191230
  Transmission Date: 20200122
  Serious: Yes (Hospitalization)
  Sender: FDA-Public Use
  Company Number: SE-TEVA-2019-SE-1158615

PATIENT
  Sex: Female

DRUGS (6)
  1. PROPAVAN [Suspect]
     Active Substance: PROPIOMAZINE
     Dosage: 850 MG
     Route: 048
     Dates: start: 20180304, end: 20180304
  2. TOPIMAX [TOPIRAMATE] [Suspect]
     Active Substance: TOPIRAMATE
     Dosage: 475 MILLIGRAM
     Route: 048
     Dates: start: 20180304, end: 20180304
  3. ARITAVI [Suspect]
     Active Substance: DULOXETINE HYDROCHLORIDE
     Dosage: 360 MG
     Route: 048
     Dates: start: 20180304, end: 20180304
  4. INDERAL [Suspect]
     Active Substance: PROPRANOLOL HYDROCHLORIDE
     Route: 048
     Dates: start: 20180304, end: 20180304
  5. CONCERTA [Suspect]
     Active Substance: METHYLPHENIDATE HYDROCHLORIDE
     Dosage: 1620 MG
     Route: 048
     Dates: start: 20180304, end: 20180304
  6. ELVANSE [Suspect]
     Active Substance: LISDEXAMFETAMINE DIMESYLATE
     Dosage: 1800 MG
     Route: 048
     Dates: start: 20180304, end: 20180304

REACTIONS (3)
  - Intentional self-injury [Unknown]
  - Bradycardia [Unknown]
  - Intentional overdose [Unknown]

NARRATIVE: CASE EVENT DATE: 20180304
